FAERS Safety Report 9227271 (Version 1)
Quarter: 2013Q2

REPORT INFORMATION
  Report Type: Spontaneous
  Country: DE (occurrence: DE)
  Receive Date: 20130412
  Receipt Date: 20130412
  Transmission Date: 20140414
  Serious: Yes (Other)
  Sender: FDA-Public Use
  Company Number: DE-ELI_LILLY_AND_COMPANY-DE201206009469

PATIENT
  Age: 69 Year
  Sex: Female

DRUGS (12)
  1. FORSTEO [Suspect]
     Indication: OSTEOPOROSIS
     Dosage: UNK, QD
     Route: 058
     Dates: start: 20120620, end: 20120624
  2. FORSTEO [Suspect]
     Dosage: UNK, UNKNOWN
     Route: 065
     Dates: start: 201302, end: 201302
  3. BISOBETA [Concomitant]
  4. ATACAND [Concomitant]
     Dosage: 8 MG, EACH MORNING
  5. DIGIMERCK [Concomitant]
     Dosage: 0.07 MG, QD
  6. PANTOPRAZOL [Concomitant]
  7. PREDNISOLON [Concomitant]
     Indication: ASTHMA
     Dosage: UNK UNK, PRN
  8. L THYROXINE [Concomitant]
  9. NOVOPULMON [Concomitant]
  10. FORMATRIS [Concomitant]
     Dosage: UNK, BID
  11. SPIRIVA [Concomitant]
  12. BERODUAL [Concomitant]
     Dosage: UNK, PRN

REACTIONS (4)
  - Arrhythmia [Recovered/Resolved]
  - Initial insomnia [Not Recovered/Not Resolved]
  - Heart rate increased [Recovered/Resolved]
  - Intentional drug misuse [Not Recovered/Not Resolved]
